FAERS Safety Report 16840142 (Version 8)
Quarter: 2023Q2

REPORT INFORMATION
  Report Type: Spontaneous
  Country: US (occurrence: US)
  Receive Date: 20190923
  Receipt Date: 20230526
  Transmission Date: 20230722
  Serious: Yes (Other)
  Sender: FDA-Public Use
  Company Number: US-PFIZER INC-2019407317

PATIENT
  Age: 78 Year
  Sex: Female
  Weight: 46.27 kg

DRUGS (4)
  1. XELJANZ XR [Suspect]
     Active Substance: TOFACITINIB CITRATE
     Indication: Rheumatoid arthritis
     Dosage: 11 MG, 1X/DAY
     Dates: start: 2017
  2. XELJANZ XR [Suspect]
     Active Substance: TOFACITINIB CITRATE
     Dosage: 11 MG, 1X/DAY
  3. XELJANZ XR [Suspect]
     Active Substance: TOFACITINIB CITRATE
     Dosage: 11 MG, ALTERNATE DAY
  4. MENEST [ESTROGENS CONJUGATED] [Concomitant]
     Indication: Hormone therapy
     Dosage: 65 MG, UNK

REACTIONS (8)
  - Thrombosis [Unknown]
  - Weight decreased [Unknown]
  - Appetite disorder [Unknown]
  - Ageusia [Unknown]
  - Sinus disorder [Unknown]
  - Tooth disorder [Unknown]
  - Pain in extremity [Unknown]
  - Off label use [Unknown]
